FAERS Safety Report 6866095-0 (Version None)
Quarter: 2010Q3

REPORT INFORMATION
  Report Type: 
  Country: None (occurrence: None)
  Receive Date: 20100722
  Receipt Date: 20100713
  Transmission Date: 20110219
  Serious: Yes (Other)
  Sender: FDA-Public Use
  Company Number: GB-ASTRAZENECA-2010SE32698

PATIENT
  Sex: Female

DRUGS (1)
  1. FASLODEX [Suspect]
     Indication: BREAST CANCER
     Dosage: 250 MG EVERY 28 DAYS PLUS/MINUS 3 DAYS.
     Route: 030

REACTIONS (7)
  - DEEP VEIN THROMBOSIS [None]
  - DYSPNOEA [None]
  - HEADACHE [None]
  - INJECTION SITE PAIN [None]
  - MUSCULOSKELETAL PAIN [None]
  - NAUSEA [None]
  - RESTLESSNESS [None]
